FAERS Safety Report 9406418 (Version 1)
Quarter: 2013Q3

REPORT INFORMATION
  Report Type: Spontaneous
  Country: CA (occurrence: CA)
  Receive Date: 20130718
  Receipt Date: 20130718
  Transmission Date: 20140515
  Serious: Yes (Hospitalization, Other)
  Sender: FDA-Public Use
  Company Number: CA-ROCHE-1249042

PATIENT
  Age: 65 Year
  Sex: Male

DRUGS (18)
  1. MYCOPHENOLATE MOFETIL [Suspect]
     Indication: PRODUCT USED FOR UNKNOWN INDICATION
     Route: 065
  2. MYCOPHENOLATE MOFETIL [Suspect]
     Route: 065
  3. NEORAL [Suspect]
     Indication: PRODUCT USED FOR UNKNOWN INDICATION
     Route: 065
  4. PREDNISONE [Suspect]
     Indication: PRODUCT USED FOR UNKNOWN INDICATION
     Route: 065
  5. ACYCLOVIR [Concomitant]
     Route: 065
  6. ANTILYMPHOCYTE GLOBULIN [Concomitant]
     Route: 065
  7. ASPIRIN [Concomitant]
     Route: 065
  8. CITALOPRAM [Concomitant]
     Route: 065
  9. DILTIAZEM [Concomitant]
     Route: 065
  10. GANCICLOVIR [Concomitant]
     Dosage: POWDER FOR SOLUTION
     Route: 042
  11. INSULIN [Concomitant]
     Route: 065
  12. ISONIAZID [Concomitant]
     Route: 065
  13. LEVOTHYROXINE [Concomitant]
     Route: 065
  14. OMEPRAZOLE [Concomitant]
     Route: 065
  15. PYRIDOXINE [Concomitant]
     Route: 065
  16. SIMVASTATIN [Concomitant]
     Dosage: TABLET
     Route: 065
  17. SULFAMETHOXAZOLE/TRIMETHOPRIM [Concomitant]
     Route: 065
  18. TRAZODONE [Concomitant]
     Dosage: TABLET
     Route: 065

REACTIONS (7)
  - Asthenia [Recovered/Resolved]
  - Cytomegalovirus infection [Recovered/Resolved]
  - Diarrhoea [Recovered/Resolved]
  - Malaise [Recovered/Resolved]
  - Marrow hyperplasia [Recovered/Resolved]
  - Pancytopenia [Recovered/Resolved]
  - Pyrexia [Recovered/Resolved]
